FAERS Safety Report 17264307 (Version 1)
Quarter: 2019Q4

REPORT INFORMATION
  Report Type: Spontaneous
  Country: US (occurrence: US)
  Receive Date: 20191219
  Receipt Date: 20191219
  Transmission Date: 20200122
  Serious: Yes (Other)
  Sender: FDA-Public Use
  Company Number: None

PATIENT
  Age: 72 Year
  Sex: Female
  Weight: 57.61 kg

DRUGS (7)
  1. TEVA ESTRADIOL VAGINAL INSERTS USP 10 MCG [Suspect]
     Active Substance: ESTRADIOL
     Indication: ATROPHIC VULVOVAGINITIS
     Dosage: ?          QUANTITY:10 UG MICROGRAM(S);?
     Route: 067
     Dates: start: 20191201, end: 20191215
  2. LOSARTAN. [Concomitant]
     Active Substance: LOSARTAN
  3. VITAMIN B12 [Concomitant]
     Active Substance: CYANOCOBALAMIN
  4. VITAMIN D [Concomitant]
     Active Substance: VITAMIN D NOS
  5. PENTASA [Concomitant]
     Active Substance: MESALAMINE
  6. COCOA STUDY [Concomitant]
  7. TEVA ESTRADIOL VAGINAL INSERTS USP 10 MCG [Suspect]
     Active Substance: ESTRADIOL
     Indication: VULVOVAGINAL DRYNESS
     Dosage: ?          QUANTITY:10 UG MICROGRAM(S);?
     Route: 067
     Dates: start: 20191201, end: 20191215

REACTIONS (5)
  - Burning sensation [None]
  - Dyspareunia [None]
  - Condition aggravated [None]
  - Vulvovaginal dryness [None]
  - Product substitution issue [None]

NARRATIVE: CASE EVENT DATE: 20191201
